FAERS Safety Report 9551129 (Version 3)
Quarter: 2013Q4

REPORT INFORMATION
  Report Type: Spontaneous
  Country: US (occurrence: US)
  Receive Date: 20130925
  Receipt Date: 20131021
  Transmission Date: 20140711
  Serious: Yes (Hospitalization, Other)
  Sender: FDA-Public Use
  Company Number: US-009507513-1309USA007580

PATIENT
  Age: 19 Year
  Sex: Female
  Weight: 79.37 kg

DRUGS (1)
  1. IMPLANON [Suspect]
     Indication: CONTRACEPTION
     Dosage: 1 DF, UNK
     Route: 059
     Dates: start: 20091208

REACTIONS (9)
  - Nephrolithiasis [Unknown]
  - Renal stone removal [Unknown]
  - Amenorrhoea [Unknown]
  - Headache [Unknown]
  - Nausea [Unknown]
  - Implant site pain [Unknown]
  - Weight increased [Unknown]
  - Incorrect drug administration duration [Unknown]
  - Expired drug administered [Unknown]
